FAERS Safety Report 10642431 (Version 1)
Quarter: 2014Q4

REPORT INFORMATION
  Report Type: Spontaneous
  Country: US (occurrence: None)
  Receive Date: 20141208
  Receipt Date: 20141208
  Transmission Date: 20150529
  Serious: Yes (Hospitalization, Other)
  Sender: FDA-Public Use
  Company Number: None

PATIENT
  Age: 69 Year
  Sex: Male

DRUGS (1)
  1. TESTIM [Suspect]
     Active Substance: TESTOSTERONE
     Indication: BLOOD TESTOSTERONE DECREASED
     Dosage: EVERY OTHER DAY, APPLIED TO A SURFACE USUALLY THE SKIN
     Dates: start: 20141001, end: 20141206

REACTIONS (3)
  - Amnesia [None]
  - Balance disorder [None]
  - Cerebrovascular accident [None]

NARRATIVE: CASE EVENT DATE: 20141207
